FAERS Safety Report 8710013 (Version 2)
Quarter: 2013Q4

REPORT INFORMATION
  Report Type: Spontaneous
  Country: US (occurrence: US)
  Receive Date: 20120806
  Receipt Date: 20131101
  Transmission Date: 20140711
  Serious: No
  Sender: FDA-Public Use
  Company Number: US-009507513-1207USA012089

PATIENT
  Sex: Male

DRUGS (6)
  1. NASONEX [Suspect]
     Dosage: 1 DF, PUF
     Route: 045
  2. NASONEX [Suspect]
     Dosage: 4 DF, PUF
     Route: 045
  3. SPIRIVA HANDIHALER [Suspect]
     Route: 055
  4. ADVAIR [Suspect]
     Route: 055
  5. ALLOPURINOL [Concomitant]
  6. LIPITOR [Concomitant]
     Dosage: 10 MG, UNK

REACTIONS (5)
  - Cough [Unknown]
  - Dyspnoea [Unknown]
  - Feeling abnormal [Unknown]
  - Throat irritation [Unknown]
  - Insomnia [Unknown]
